FAERS Safety Report 15867009 (Version 1)
Quarter: 2019Q1

REPORT INFORMATION
  Report Type: Report from Study
  Country: GB (occurrence: GB)
  Receive Date: 20190125
  Receipt Date: 20190125
  Transmission Date: 20190417
  Serious: Yes (Death, Other)
  Sender: FDA-Public Use
  Company Number: GB-ACCORD-103367

PATIENT
  Age: 86 Year
  Sex: Female

DRUGS (6)
  1. RIVAROXABAN [Interacting]
     Active Substance: RIVAROXABAN
     Indication: ATRIAL FIBRILLATION
  2. CLOPIDOGREL [Interacting]
     Active Substance: CLOPIDOGREL BISULFATE
     Indication: CEREBRAL AMYLOID ANGIOPATHY
  3. RIVAROXABAN [Interacting]
     Active Substance: RIVAROXABAN
     Indication: TRANSIENT ISCHAEMIC ATTACK
     Dosage: UNK
  4. CLOPIDOGREL [Interacting]
     Active Substance: CLOPIDOGREL BISULFATE
     Indication: TRANSIENT ISCHAEMIC ATTACK
     Dosage: UNK
  5. RIVAROXABAN [Interacting]
     Active Substance: RIVAROXABAN
     Indication: CEREBRAL AMYLOID ANGIOPATHY
  6. CLOPIDOGREL [Suspect]
     Active Substance: CLOPIDOGREL BISULFATE
     Indication: ATRIAL FIBRILLATION

REACTIONS (4)
  - Labelled drug-drug interaction medication error [Fatal]
  - Cerebral haemorrhage [Fatal]
  - Medication error [Unknown]
  - Off label use [Unknown]
